FAERS Safety Report 25894120 (Version 2)
Quarter: 2025Q4

REPORT INFORMATION
  Report Type: Report from Study
  Country: US (occurrence: US)
  Receive Date: 20251008
  Receipt Date: 20251010
  Transmission Date: 20260118
  Serious: Yes (Hospitalization)
  Sender: BAUSCH AND LOMB
  Company Number: US-BAUSCH-BH-2025-018494

PATIENT
  Age: 34 Year
  Sex: Male

DRUGS (1)
  1. XIFAXAN [Suspect]
     Active Substance: RIFAXIMIN
     Indication: Hepatic cirrhosis
     Route: 048

REACTIONS (5)
  - Hyponatraemia [Unknown]
  - Blood bilirubin increased [Unknown]
  - Seizure [Unknown]
  - Cerebral haemorrhage [Unknown]
  - Therapy interrupted [Unknown]
